FAERS Safety Report 24087773 (Version 1)
Quarter: 2024Q3

REPORT INFORMATION
  Report Type: Spontaneous
  Country: US (occurrence: None)
  Receive Date: 20240715
  Receipt Date: 20240715
  Transmission Date: 20241016
  Serious: No
  Sender: ASTRAZENECA
  Company Number: 2024A152500

PATIENT
  Age: 81 Year
  Sex: Female
  Weight: 65.3 kg

DRUGS (1)
  1. LOKELMA [Suspect]
     Active Substance: SODIUM ZIRCONIUM CYCLOSILICATE
     Indication: Hyperkalaemia
     Route: 048

REACTIONS (3)
  - Renal tubular acidosis [Unknown]
  - Product use issue [Unknown]
  - Product physical consistency issue [Unknown]
